FAERS Safety Report 9372174 (Version 1)
Quarter: 2013Q2

REPORT INFORMATION
  Report Type: Report from Study
  Country: US (occurrence: US)
  Receive Date: 20130627
  Receipt Date: 20130627
  Transmission Date: 20140414
  Serious: Yes (Other)
  Sender: FDA-Public Use
  Company Number: US-MYLANLABS-2012S1016395

PATIENT
  Age: 25 Year
  Sex: Female

DRUGS (8)
  1. CLOZAPINE TABLETS [Suspect]
     Indication: SCHIZOAFFECTIVE DISORDER
     Route: 048
     Dates: start: 20120607, end: 20120809
  2. HALDOL [Concomitant]
     Route: 048
  3. ELAVIL /00002202/ [Concomitant]
     Route: 030
  4. SERTRALINE [Concomitant]
     Route: 048
  5. LAMOTRIGINE [Concomitant]
     Route: 048
  6. DIPHENHYDRAMINE [Concomitant]
     Route: 048
  7. BENZOTROPINE [Concomitant]
     Route: 048
  8. BROMOCRIPTINE [Concomitant]
     Route: 048

REACTIONS (1)
  - Granulocytopenia [Not Recovered/Not Resolved]
